FAERS Safety Report 5602539-X (Version None)
Quarter: 2008Q1

REPORT INFORMATION
  Report Type: 
  Country: None (occurrence: None)
  Receive Date: 20080125
  Receipt Date: 20080114
  Transmission Date: 20080703
  Serious: Yes (Hospitalization)
  Sender: FDA-Public Use
  Company Number: B0504917A

PATIENT
  Age: 95 Year
  Sex: Female

DRUGS (11)
  1. AUGMENTIN '125' [Suspect]
     Indication: DRUG USE FOR UNKNOWN INDICATION
     Route: 048
     Dates: start: 20070801, end: 20070901
  2. ACETAMINOPHEN [Concomitant]
     Indication: URINARY TRACT INFECTION
     Route: 048
     Dates: start: 20070921, end: 20070923
  3. APROVEL [Concomitant]
     Route: 048
  4. HEMIGOXINE NATIVELLE [Concomitant]
     Route: 048
     Dates: end: 20070925
  5. LASIX [Concomitant]
     Route: 048
  6. NITROGLYCERIN [Concomitant]
     Route: 062
  7. LEVOTHYROX [Concomitant]
     Indication: HYPOTHYROIDISM
     Route: 048
  8. DIFFU-K [Concomitant]
     Route: 048
  9. ZANIDIP [Concomitant]
     Route: 048
     Dates: start: 20070609
  10. LAMALINE [Concomitant]
     Route: 048
     Dates: start: 20070921, end: 20070923
  11. VOLTAREN [Concomitant]
     Route: 061
     Dates: start: 20070921, end: 20070923

REACTIONS (6)
  - CUTANEOUS VASCULITIS [None]
  - DERMATITIS EXFOLIATIVE [None]
  - PURPURA [None]
  - PYREXIA [None]
  - RASH MACULAR [None]
  - SKIN PLAQUE [None]
